FAERS Safety Report 8531866-1 (Version None)
Quarter: 2012Q3

REPORT INFORMATION
  Report Type: 
  Country: None (occurrence: None)
  Receive Date: 20120723
  Receipt Date: 20120718
  Transmission Date: 20120928
  Serious: Yes (Other)
  Sender: FDA-Public Use
  Company Number: AU-AMGEN-AUSSP2012024553

PATIENT
  Sex: Female

DRUGS (2)
  1. NPLATE [Suspect]
     Indication: PRODUCT USED FOR UNKNOWN INDICATION
     Dosage: 10 MG/KG, UNK
     Dates: end: 20120401
  2. CORTICOSTEROIDS [Concomitant]

REACTIONS (3)
  - DRUG INEFFECTIVE [None]
  - THROMBOCYTOPENIA [None]
  - DRUG EFFECT DECREASED [None]
